FAERS Safety Report 20139604 (Version 1)
Quarter: 2021Q4

REPORT INFORMATION
  Report Type: Spontaneous
  Country: FR (occurrence: FR)
  Receive Date: 20211202
  Receipt Date: 20211202
  Transmission Date: 20220304
  Serious: Yes (Hospitalization, Other)
  Sender: FDA-Public Use
  Company Number: None

PATIENT
  Age: 43 Year
  Sex: Male

DRUGS (44)
  1. ACETAMINOPHEN [Suspect]
     Active Substance: ACETAMINOPHEN
     Indication: Pain
     Dosage: SI DOULEUR OU FI?VRE
     Route: 048
     Dates: start: 2017, end: 2017
  2. ACETAMINOPHEN [Suspect]
     Active Substance: ACETAMINOPHEN
     Dosage: UNK
  3. CYCLOSPORINE [Suspect]
     Active Substance: CYCLOSPORINE
     Indication: Prophylaxis against transplant rejection
     Dosage: 80 MILLIGRAM, QD
     Route: 048
     Dates: start: 2017, end: 2017
  4. MYCOPHENOLATE MOFETIL [Suspect]
     Active Substance: MYCOPHENOLATE MOFETIL
     Dosage: 1 GRAM, BID
     Dates: start: 2017
  5. AMIKACIN [Suspect]
     Active Substance: AMIKACIN
     Indication: Pain
     Dosage: NON RENSEIGN?E
     Route: 042
     Dates: start: 20170421, end: 20170424
  6. AMIKACIN [Suspect]
     Active Substance: AMIKACIN
     Dosage: UNK
     Route: 042
     Dates: start: 20170607, end: 20170610
  7. AMIKACIN [Suspect]
     Active Substance: AMIKACIN
     Dosage: UNK
     Route: 042
     Dates: start: 20170403, end: 20170408
  8. AMIKACIN [Suspect]
     Active Substance: AMIKACIN
     Dosage: UNK
     Route: 042
     Dates: start: 20170526, end: 20170529
  9. AMIKACIN [Suspect]
     Active Substance: AMIKACIN
     Dosage: 20 MILLIGRAM, Q6H
     Route: 042
     Dates: start: 2017
  10. SOLU-MEDROL [Suspect]
     Active Substance: METHYLPREDNISOLONE SODIUM SUCCINATE
     Indication: Product used for unknown indication
     Dosage: 160 MILLIGRAM, QD
     Route: 042
     Dates: start: 2017, end: 20170609
  11. DITROPAN [Suspect]
     Active Substance: OXYBUTYNIN CHLORIDE
     Indication: Product used for unknown indication
     Dosage: 15 MILLIGRAM, QD
     Route: 048
     Dates: start: 2017, end: 20170509
  12. DITROPAN [Suspect]
     Active Substance: OXYBUTYNIN CHLORIDE
     Dosage: 5 MILLIGRAM, Q8H
     Route: 048
     Dates: start: 2017, end: 20170509
  13. PHLOROGLUCINOL\1,3,5-TRIMETHOXYBENZENE [Suspect]
     Active Substance: PHLOROGLUCINOL\1,3,5-TRIMETHOXYBENZENE
     Indication: Pain
     Dosage: SI DOULEUR ABDOMINALE
     Route: 048
     Dates: start: 2017, end: 2017
  14. PHLOROGLUCINOL\1,3,5-TRIMETHOXYBENZENE [Suspect]
     Active Substance: PHLOROGLUCINOL\1,3,5-TRIMETHOXYBENZENE
     Indication: Abdominal pain
     Dosage: 2 DOSAGE FORM, QD
     Dates: start: 2017
  15. CANCIDAS [Suspect]
     Active Substance: CASPOFUNGIN ACETATE
     Indication: Fungal infection
     Dosage: 70 MILLIGRAM, 24 HOURS
     Route: 042
     Dates: start: 201703, end: 2017
  16. GANCICLOVIR [Suspect]
     Active Substance: GANCICLOVIR
     Indication: Prophylaxis
     Dosage: NON COMMUNIQU?E
     Route: 042
     Dates: start: 20170330, end: 20170504
  17. CILASTATIN SODIUM\IMIPENEM [Suspect]
     Active Substance: CILASTATIN SODIUM\IMIPENEM
     Indication: Product used for unknown indication
     Dosage: 500 MILLIGRAM, Q8H
     Route: 042
     Dates: start: 201703, end: 20170403
  18. EUPANTOL [Suspect]
     Active Substance: PANTOPRAZOLE SODIUM
     Indication: Gastrooesophageal reflux disease
     Dosage: 40 MILLIGRAM, QD
     Route: 042
     Dates: start: 2017, end: 2017
  19. URSODIOL [Suspect]
     Active Substance: URSODIOL
     Indication: Product used for unknown indication
     Dosage: 200 MILLIGRAM
     Route: 048
     Dates: start: 20170331
  20. LINEZOLID [Suspect]
     Active Substance: LINEZOLID
     Indication: Product used for unknown indication
     Dosage: 600 MILLIGRAM, 12 HOURS
     Route: 042
     Dates: start: 201703, end: 20170430
  21. ZERBAXA [Suspect]
     Active Substance: CEFTOLOZANE SULFATE\TAZOBACTAM SODIUM
     Indication: Cellulitis
     Dosage: 3 GRAM, QD
     Route: 042
     Dates: start: 20170331
  22. ACUPAN [Suspect]
     Active Substance: NEFOPAM HYDROCHLORIDE
     Indication: Pain
     Dosage: 20 MG, Q6H
     Route: 042
     Dates: start: 2017, end: 2017
  23. BACTRIM [Suspect]
     Active Substance: SULFAMETHOXAZOLE\TRIMETHOPRIM
     Indication: Pneumocystis jirovecii pneumonia
     Dosage: 800 MILLIGRAM, QD
     Route: 048
     Dates: start: 201703, end: 20170526
  24. URAPIDIL [Suspect]
     Active Substance: URAPIDIL
     Indication: Hypertension
     Dosage: 2 MILLIGRAM, QH
     Route: 042
     Dates: start: 201703, end: 20170330
  25. RACECADOTRIL [Suspect]
     Active Substance: RACECADOTRIL
     Indication: Diarrhoea
     Dosage: 600 MILLIGRAM, QD
     Route: 048
     Dates: start: 2017, end: 2017
  26. SODIUM ALGINATE [Suspect]
     Active Substance: SODIUM ALGINATE
     Indication: Gastrooesophageal reflux disease
     Dosage: 1 DOSAGE FORM, Q8H
     Route: 048
     Dates: start: 2017
  27. MAGNESIUM ALGINATE [Suspect]
     Active Substance: MAGNESIUM ALGINATE
     Indication: Gastrooesophageal reflux disease
     Dosage: 1 DOSAGE FORM, Q8H
     Route: 048
     Dates: start: 2017
  28. VALACYCLOVIR HYDROCHLORIDE [Suspect]
     Active Substance: VALACYCLOVIR HYDROCHLORIDE
     Indication: Prophylaxis
     Dosage: UNK
     Route: 048
     Dates: start: 20170504
  29. SODIUM ALGINATE [Suspect]
     Active Substance: SODIUM ALGINATE
     Indication: Product used for unknown indication
     Dosage: 3 DOSAGE FORM, QD
     Route: 048
     Dates: start: 2017, end: 2017
  30. MAGNESIUM ALGINATE\SODIUM ALGINATE [Suspect]
     Active Substance: MAGNESIUM ALGINATE\SODIUM ALGINATE
     Indication: Gastrooesophageal reflux disease
     Dosage: 1 DOSAGE FORM, Q8H
     Route: 048
  31. HYDROCORTISONE [Suspect]
     Active Substance: HYDROCORTISONE
     Indication: Product used for unknown indication
     Dosage: UNK
  32. URAPIDIL [Suspect]
     Active Substance: URAPIDIL
     Indication: Hypertension
     Dosage: 2 MILLIGRAM, QD
     Route: 042
     Dates: start: 201703, end: 201703
  33. KEPPRA [Concomitant]
     Active Substance: LEVETIRACETAM
     Indication: Epilepsy
     Dosage: 1000 MILLIGRAM, QD
     Route: 048
     Dates: start: 20170422
  34. CELLCEPT                           /01275102/ [Concomitant]
     Indication: Prophylaxis against transplant rejection
     Dosage: 2000 MILLIGRAM, QD
     Route: 048
     Dates: start: 2017
  35. CELLCEPT                           /01275102/ [Concomitant]
     Dosage: 1000 MILLIGRAM, BID
     Route: 048
     Dates: start: 2017
  36. VALACYCLOVIR HYDROCHLORIDE [Concomitant]
     Active Substance: VALACYCLOVIR HYDROCHLORIDE
     Indication: Prophylaxis
     Dosage: UNK
     Route: 048
     Dates: start: 20170504
  37. BISOPROLOL [Concomitant]
     Active Substance: BISOPROLOL
     Indication: Prophylaxis
     Dosage: UNK
     Route: 048
     Dates: start: 20170513
  38. BISOPROLOL [Concomitant]
     Active Substance: BISOPROLOL
     Dosage: UNK
     Dates: start: 20170531
  39. TEICOPLANIN [Concomitant]
     Active Substance: TEICOPLANIN
     Dosage: UNK
     Route: 065
     Dates: start: 20170524, end: 20170529
  40. RAMIPRIL [Concomitant]
     Active Substance: RAMIPRIL
     Indication: Prophylaxis against transplant rejection
     Dosage: 2000 MILLIGRAM, QD
     Route: 048
     Dates: start: 20170331
  41. AMLODIPINE BESYLATE [Concomitant]
     Active Substance: AMLODIPINE BESYLATE
     Indication: Epilepsy
     Dosage: 1000 MILLIGRAM, QD
     Route: 048
     Dates: start: 20170526
  42. AMLODIPINE BESYLATE [Concomitant]
     Active Substance: AMLODIPINE BESYLATE
     Dosage: UNK
     Dates: start: 20170526
  43. ATOVAQUONE [Concomitant]
     Active Substance: ATOVAQUONE
     Dosage: UNK
     Route: 065
     Dates: start: 20170526
  44. YDRALBUM [Concomitant]
     Active Substance: ALBUMIN HUMAN
     Dosage: UNK

REACTIONS (5)
  - Pancytopenia [Recovered/Resolved]
  - Confusional state [Not Recovered/Not Resolved]
  - Amnesia [Not Recovered/Not Resolved]
  - Pneumocystis jirovecii pneumonia [Unknown]
  - Cellulitis [Unknown]

NARRATIVE: CASE EVENT DATE: 20170329
